FAERS Safety Report 18860501 (Version 2)
Quarter: 2021Q1

REPORT INFORMATION
  Report Type: Spontaneous
  Country: US (occurrence: US)
  Receive Date: 20210208
  Receipt Date: 20210312
  Transmission Date: 20210420
  Serious: No
  Sender: FDA-Public Use
  Company Number: US-ASTRAZENECA-2021A013216

PATIENT
  Sex: Female
  Weight: 74.8 kg

DRUGS (1)
  1. BYDUREON [Suspect]
     Active Substance: EXENATIDE
     Indication: INSURANCE ISSUE
     Route: 058
     Dates: start: 202101

REACTIONS (9)
  - Device leakage [Unknown]
  - Headache [Unknown]
  - Vomiting [Unknown]
  - Fatigue [Unknown]
  - Visual impairment [Unknown]
  - Dyspepsia [Unknown]
  - Nausea [Unknown]
  - Wrong technique in product usage process [Unknown]
  - Migraine [Unknown]
